FAERS Safety Report 5052437-8 (Version None)
Quarter: 2006Q3

REPORT INFORMATION
  Report Type: 
  Country: None (occurrence: None)
  Receive Date: 20060717
  Receipt Date: 20060706
  Transmission Date: 20061208
  Serious: Yes (Death, Other)
  Sender: FDA-Public Use
  Company Number: PHBS2006JP10101

PATIENT

DRUGS (1)
  1. ZOMETA [Suspect]
     Indication: METASTASES TO BONE
     Dosage: DRIP INFUSION
     Route: 042

REACTIONS (4)
  - BLOOD UREA INCREASED [None]
  - DEATH [None]
  - RENAL DISORDER [None]
  - RENAL FAILURE [None]
